FAERS Safety Report 4365025-3 (Version None)
Quarter: 2004Q2

REPORT INFORMATION
  Report Type: 
  Country: None (occurrence: None)
  Receive Date: 20040521
  Receipt Date: 20040511
  Transmission Date: 20050107
  Serious: Yes (Hospitalization)
  Sender: FDA-Public Use
  Company Number: 2004031968

PATIENT
  Age: 55 Year
  Sex: Female

DRUGS (5)
  1. NEURONTIN [Suspect]
     Indication: CONVULSION
     Dosage: 300 MG, (300 MG, 1 IN 1 D)
     Dates: start: 20031201
  2. AMITRIPTYLINE HYDROCHLORIDE [Concomitant]
  3. BI PREDONIUM (INDAPAMDIE, PERINDOPRIL ERBUMINE) [Concomitant]
  4. CONJUGATED ESTROGENS [Concomitant]
  5. DIAZEPAM [Concomitant]

REACTIONS (7)
  - FEELING ABNORMAL [None]
  - HYPERSENSITIVITY [None]
  - PRODUCTIVE COUGH [None]
  - RASH [None]
  - SKIN DISCOLOURATION [None]
  - UPPER RESPIRATORY TRACT INFECTION [None]
  - VOMITING [None]
